FAERS Safety Report 22075862 (Version 9)
Quarter: 2024Q3

REPORT INFORMATION
  Report Type: Report from Study
  Country: IN (occurrence: IN)
  Receive Date: 20230308
  Receipt Date: 20240819
  Transmission Date: 20241017
  Serious: Yes (Death, Hospitalization, Other)
  Sender: INCYTE
  Company Number: IN-002147023-NVSC2023IN003612

PATIENT

DRUGS (5)
  1. RUXOLITINIB [Suspect]
     Active Substance: RUXOLITINIB
     Indication: Myelofibrosis
     Dosage: 5 MG, BID
     Route: 048
     Dates: start: 20221231
  2. RUXOLITINIB [Suspect]
     Active Substance: RUXOLITINIB
     Indication: Primary myelofibrosis
     Dosage: 10 MG, BID
     Route: 048
     Dates: start: 20230505
  3. RUXOLITINIB [Suspect]
     Active Substance: RUXOLITINIB
     Dosage: 10 MG, BID
     Route: 048
     Dates: start: 20230620
  4. RUXOLITINIB [Suspect]
     Active Substance: RUXOLITINIB
     Dosage: 10 MG, BID
     Route: 048
     Dates: start: 20230901
  5. RUXOLITINIB [Suspect]
     Active Substance: RUXOLITINIB
     Dosage: 5 MG, BID
     Route: 048

REACTIONS (26)
  - Anaemia [Unknown]
  - Haemorrhage [Unknown]
  - Cerebrovascular accident [Fatal]
  - Impaired gastric emptying [Unknown]
  - Hydronephrosis [Unknown]
  - Ecchymosis [Unknown]
  - Hepatosplenomegaly [Unknown]
  - White blood cell count increased [Unknown]
  - Platelet count increased [Unknown]
  - Hypertension [Unknown]
  - Hypothyroidism [Unknown]
  - Abdominal pain upper [Unknown]
  - Ear haemorrhage [Unknown]
  - Haemoglobin decreased [Unknown]
  - Platelet count decreased [Not Recovered/Not Resolved]
  - Vasodilatation [Unknown]
  - Ovarian cyst [Unknown]
  - Abdominal pain [Unknown]
  - Vomiting [Unknown]
  - Pallor [Unknown]
  - Gastroenteritis [Unknown]
  - Off label use [Unknown]
  - Splenomegaly [Unknown]
  - Tooth discolouration [Unknown]
  - Urinary tract infection [Recovered/Resolved]
  - Pelvi-ureteric obstruction [Unknown]

NARRATIVE: CASE EVENT DATE: 20230404
